FAERS Safety Report 4307563-5 (Version None)
Quarter: 2004Q1

REPORT INFORMATION
  Report Type: 
  Country: None (occurrence: None)
  Receive Date: 20040226
  Receipt Date: 20040213
  Transmission Date: 20041129
  Serious: Yes (Death)
  Sender: FDA-Public Use
  Company Number: 2004-BP-01120RA

PATIENT
  Sex: Male

DRUGS (1)
  1. SPIRIVA [Suspect]

REACTIONS (1)
  - DEATH [None]
